FAERS Safety Report 9402879 (Version 1)
Quarter: 2013Q4

REPORT INFORMATION
  Report Type: Spontaneous
  Country: US (occurrence: None)
  Receive Date: 20130715
  Receipt Date: 20130715
  Transmission Date: 20140711
  Serious: Yes (Hospitalization)
  Sender: FDA-Public Use
  Company Number: None

PATIENT
  Age: 65 Year
  Sex: Male
  Weight: 56.7 kg

DRUGS (3)
  1. LENALIDOMIDE [Suspect]
     Indication: PLASMA CELL MYELOMA
     Dosage: 25 MG ON DAYS 1/21 PO
     Route: 048
     Dates: start: 20130520, end: 20130609
  2. PANOBINOSTAT 20 MG PO [Suspect]
     Dosage: 20 MG DAYS 1,3,5,15,17,19
     Dates: start: 20130520, end: 20130607
  3. DEXAMETHASONE [Concomitant]

REACTIONS (2)
  - Neutropenia [None]
  - Failure to thrive [None]
